FAERS Safety Report 6097787-1 (Version None)
Quarter: 2009Q2

REPORT INFORMATION
  Report Type: 
  Country: None (occurrence: None)
  Receive Date: 20090227
  Receipt Date: 20090216
  Transmission Date: 20091009
  Serious: Yes (Hospitalization)
  Sender: FDA-Public Use
  Company Number: ES-PFIZER INC-2009170800

PATIENT

DRUGS (3)
  1. EPIRUBICIN HCL [Suspect]
     Indication: BREAST CANCER
     Dosage: 114 MG (50 MG), CYCLIC
     Route: 042
     Dates: start: 20081113, end: 20081113
  2. FLUOROURACIL [Interacting]
     Indication: BREAST CANCER
     Dosage: 760 (50 MG/ML), CYCLIC
     Route: 042
     Dates: start: 20081113, end: 20081113
  3. CYCLOPHOSPHAMIDE [Interacting]
     Indication: BREAST CANCER
     Dosage: 760 MG (1 G), CYCLIC
     Route: 042
     Dates: start: 20081113, end: 20081113

REACTIONS (4)
  - COUGH [None]
  - DRUG INTERACTION [None]
  - PANCYTOPENIA [None]
  - PYREXIA [None]
